FAERS Safety Report 23897577 (Version 3)
Quarter: 2024Q3

REPORT INFORMATION
  Report Type: Spontaneous
  Country: US (occurrence: US)
  Receive Date: 20240524
  Receipt Date: 20240705
  Transmission Date: 20241017
  Serious: Yes (Other)
  Sender: CALLIDITAS THERAPEUTICS
  Company Number: US-Calliditas-2024CAL00842

PATIENT
  Age: 45 Year
  Sex: Female
  Weight: 145.15 kg

DRUGS (1)
  1. TARPEYO [Suspect]
     Active Substance: BUDESONIDE
     Indication: IgA nephropathy
     Route: 048
     Dates: start: 20240122

REACTIONS (9)
  - Fluid retention [Recovering/Resolving]
  - Cholecystitis [Unknown]
  - Product dose omission issue [Unknown]
  - Muscular weakness [Unknown]
  - Back pain [Unknown]
  - Fatigue [Unknown]
  - Dry eye [Unknown]
  - Vision blurred [Unknown]
  - Renal impairment [Unknown]
